FAERS Safety Report 9934861 (Version 2)
Quarter: 2014Q1

REPORT INFORMATION
  Report Type: Report from Study
  Country: US (occurrence: US)
  Receive Date: 20140228
  Receipt Date: 20140228
  Transmission Date: 20141002
  Serious: Yes (Hospitalization, Other)
  Sender: FDA-Public Use
  Company Number: US-ABBVIE-13P-163-1031973-00

PATIENT
  Age: 42 Year
  Sex: Female
  Weight: 90.8 kg

DRUGS (6)
  1. HUMIRA [Suspect]
     Indication: CROHN^S DISEASE
     Dates: start: 201202, end: 201202
  2. HUMIRA [Suspect]
     Dosage: TWO WEEKS AFTER INITIAL DOSE
     Route: 058
     Dates: start: 201202, end: 201202
  3. HUMIRA [Suspect]
     Route: 058
     Dates: start: 201203
  4. EFFEXOR [Concomitant]
     Indication: DEPRESSION
  5. TRAZODONE [Concomitant]
     Indication: INSOMNIA
  6. ZYRTEC [Concomitant]
     Indication: HYPERSENSITIVITY

REACTIONS (21)
  - Intestinal obstruction [Unknown]
  - Intestinal obstruction [Unknown]
  - Intestinal obstruction [Unknown]
  - Intestinal obstruction [Unknown]
  - Intestinal obstruction [Unknown]
  - Intestinal obstruction [Unknown]
  - Intestinal fibrosis [Unknown]
  - Anastomotic stenosis [Unknown]
  - Colectomy [Unknown]
  - Intestinal resection [Unknown]
  - Crohn^s disease [Recovered/Resolved]
  - Crohn^s disease [Unknown]
  - Concussion [Unknown]
  - Neck pain [Not Recovered/Not Resolved]
  - Musculoskeletal pain [Not Recovered/Not Resolved]
  - Headache [Not Recovered/Not Resolved]
  - Papule [Not Recovered/Not Resolved]
  - Contusion [Not Recovered/Not Resolved]
  - Road traffic accident [Recovered/Resolved]
  - Contusion [Unknown]
  - Drug ineffective [Unknown]
